FAERS Safety Report 7266330-3 (Version None)
Quarter: 2011Q1

REPORT INFORMATION
  Report Type: 
  Country: None (occurrence: None)
  Receive Date: 20110131
  Receipt Date: 20110121
  Transmission Date: 20110831
  Serious: Yes (Hospitalization, Other)
  Sender: FDA-Public Use
  Company Number: ES-JNJFOC-20110105930

PATIENT
  Age: 47 Year
  Sex: Male
  Weight: 99 kg

DRUGS (3)
  1. REMICADE [Suspect]
     Route: 042
  2. REMICADE [Suspect]
     Indication: ANKYLOSING SPONDYLITIS
     Route: 042
  3. OMEPRAZOLE [Concomitant]

REACTIONS (2)
  - HENOCH-SCHONLEIN PURPURA [None]
  - LEUKOCYTOCLASTIC VASCULITIS [None]
